FAERS Safety Report 11199435 (Version 1)
Quarter: 2015Q2

REPORT INFORMATION
  Report Type: Report from Study
  Country: None (occurrence: None)
  Receive Date: 20150616
  Receipt Date: 20150616
  Transmission Date: 20150821
  Serious: Yes (Hospitalization)
  Sender: FDA-Public Use
  Company Number: 2015SA006623

PATIENT
  Age: 43 Year
  Sex: Female
  Weight: 52 kg

DRUGS (6)
  1. LANTUS [Suspect]
     Active Substance: INSULIN GLARGINE
     Indication: TYPE 2 DIABETES MELLITUS
     Route: 058
  2. INSULATARD(INSULIN HUMAN INJECTION, ISOPHANE) [Suspect]
     Active Substance: INSULIN HUMAN
     Indication: DIABETES MELLITUS
     Route: 058
  3. EUTIROX [Concomitant]
     Active Substance: LEVOTHYROXINE SODIUM
  4. CLONAZEPAM. [Concomitant]
     Active Substance: CLONAZEPAM
  5. APIDRA [Suspect]
     Active Substance: INSULIN GLULISINE
     Indication: TYPE 2 DIABETES MELLITUS
     Route: 058
     Dates: start: 201411
  6. CALCIUM [Concomitant]
     Active Substance: CALCIUM

REACTIONS (9)
  - Back pain [None]
  - Headache [None]
  - Injection site haemorrhage [None]
  - Therapy cessation [None]
  - Hypoglycaemia [None]
  - Hyperglycaemia [None]
  - Cold sweat [None]
  - Tooth infection [None]
  - Pain in jaw [None]

NARRATIVE: CASE EVENT DATE: 20141210
